FAERS Safety Report 6366775-X (Version None)
Quarter: 2009Q3

REPORT INFORMATION
  Report Type: 
  Country: None (occurrence: None)
  Receive Date: 20090915
  Receipt Date: 20090902
  Transmission Date: 20100115
  Serious: Yes (Hospitalization)
  Sender: FDA-Public Use
  Company Number: 2009-03605

PATIENT
  Age: 68 Year
  Sex: Male

DRUGS (3)
  1. VELCADE [Suspect]
     Indication: MULTIPLE MYELOMA
     Dosage: 1.8 MG, INTRAVENOUS
     Route: 042
     Dates: start: 20090630, end: 20090806
  2. DOXORUBICIN HCL [Suspect]
     Indication: MULTIPLE MYELOMA
     Dosage: 17 MG, INTRAVENOUS
     Route: 042
     Dates: start: 20090630, end: 20090806
  3. DEXAMETHASONE TAB [Suspect]
     Indication: MULTIPLE MYELOMA
     Dosage: 40 MG ORAL
     Route: 048
     Dates: start: 20090630, end: 20090720

REACTIONS (6)
  - DEHYDRATION [None]
  - FLUID INTAKE REDUCED [None]
  - HYPOPHAGIA [None]
  - LOWER RESPIRATORY TRACT INFECTION [None]
  - MUCOSAL INFLAMMATION [None]
  - PARAINFLUENZAE VIRUS INFECTION [None]
